FAERS Safety Report 7622533-7 (Version None)
Quarter: 2011Q3

REPORT INFORMATION
  Report Type: 
  Country: None (occurrence: None)
  Receive Date: 20110712
  Receipt Date: 20110627
  Transmission Date: 20111222
  Serious: Yes (Life-Threatening)
  Sender: FDA-Public Use
  Company Number: TCI2011A03596

PATIENT
  Age: 61 Year
  Sex: Male

DRUGS (10)
  1. NEUFAN (ALLOPURINOL) [Concomitant]
  2. EVAMYL (LORMETAZEPAM) [Concomitant]
  3. ACTOS [Suspect]
     Indication: BLOOD GLUCOSE ABNORMAL
     Dosage: 30 MG (30 MG, 1 IN 1 D) PER ORAL
     Route: 048
     Dates: start: 19991211, end: 20031017
  4. ACTOS [Suspect]
     Indication: BLOOD GLUCOSE ABNORMAL
     Dosage: 30 MG (30 MG, 1 IN 1 D) PER ORAL
     Route: 048
     Dates: start: 20050325, end: 20100510
  5. URALYT (SODIUM CITRATE ACID, POTASSIUM CITRATE) [Concomitant]
  6. AMARYL [Concomitant]
  7. EPATAT (EPALRESTAT) [Concomitant]
  8. GLUFAST (MITIGLINIDE CALCIUM) [Concomitant]
  9. EPADEL-S (ETHYL ICOSAPENTATE) [Concomitant]
  10. OPALMON (LIMAPROST) [Concomitant]

REACTIONS (1)
  - BLADDER CANCER [None]
